FAERS Safety Report 8221615-9 (Version None)
Quarter: 2012Q1

REPORT INFORMATION
  Report Type: 
  Country: None (occurrence: None)
  Receive Date: 20120320
  Receipt Date: 20120305
  Transmission Date: 20120608
  Serious: Yes (Hospitalization, Other)
  Sender: FDA-Public Use
  Company Number: US-WATSON-2012-03871

PATIENT
  Sex: Male
  Weight: 120 kg

DRUGS (1)
  1. LEVETIRACETAM [Suspect]
     Indication: CONVULSION
     Dosage: ONE TAB TID
     Route: 048
     Dates: start: 20120101, end: 20120226

REACTIONS (4)
  - PETIT MAL EPILEPSY [None]
  - DRUG INEFFECTIVE [None]
  - FEELING ABNORMAL [None]
  - GRAND MAL CONVULSION [None]
